FAERS Safety Report 19749216 (Version 1)
Quarter: 2021Q3

REPORT INFORMATION
  Report Type: Spontaneous
  Country: US (occurrence: US)
  Receive Date: 20210826
  Receipt Date: 20210826
  Transmission Date: 20211014
  Serious: Yes (Hospitalization)
  Sender: FDA-Public Use
  Company Number: US-GLAXOSMITHKLINE-US2021178336

PATIENT
  Age: 74 Year
  Sex: Female

DRUGS (1)
  1. BREO ELLIPTA [Suspect]
     Active Substance: FLUTICASONE FUROATE\VILANTEROL TRIFENATATE
     Indication: HYPERSENSITIVITY
     Dosage: UNK
     Dates: start: 201701

REACTIONS (3)
  - Product use in unapproved indication [Unknown]
  - Cardiac operation [Recovered/Resolved with Sequelae]
  - Vascular graft [Recovered/Resolved]

NARRATIVE: CASE EVENT DATE: 201701
